FAERS Safety Report 24273633 (Version 1)
Quarter: 2024Q3

REPORT INFORMATION
  Report Type: Spontaneous
  Country: US (occurrence: US)
  Receive Date: 20240902
  Receipt Date: 20240902
  Transmission Date: 20241017
  Serious: No
  Sender: ASTELLAS
  Company Number: US-ASTELLAS-2024US015605

PATIENT
  Sex: Male
  Weight: 97.6 kg

DRUGS (2)
  1. XTANDI [Suspect]
     Active Substance: ENZALUTAMIDE
     Indication: Prostate cancer
     Dosage: 120 MG, ONCE DAILY
     Route: 048
  2. TALZENNA [Concomitant]
     Active Substance: TALAZOPARIB TOSYLATE
     Indication: Prostate cancer
     Dosage: 1 DF, ONCE DAILY
     Route: 048

REACTIONS (2)
  - Underdose [Unknown]
  - Off label use [Unknown]
